FAERS Safety Report 5835574-7 (Version None)
Quarter: 2008Q3

REPORT INFORMATION
  Report Type: 
  Country: None (occurrence: None)
  Receive Date: 20080806
  Receipt Date: 20080801
  Transmission Date: 20090109
  Serious: Yes (Death)
  Sender: FDA-Public Use
  Company Number: B0532068A

PATIENT
  Age: 37 Year
  Sex: Male

DRUGS (2)
  1. ABACAVIR [Suspect]
     Indication: HIV INFECTION
     Route: 048
     Dates: start: 20071211
  2. STATINES [Concomitant]
     Dates: start: 20070904

REACTIONS (3)
  - ACUTE MYOCARDIAL INFARCTION [None]
  - CHEST PAIN [None]
  - SUDDEN DEATH [None]
